FAERS Safety Report 11934306 (Version 20)
Quarter: 2018Q2

REPORT INFORMATION
  Report Type: Report from Study
  Country: US (occurrence: US)
  Receive Date: 20160121
  Receipt Date: 20180524
  Transmission Date: 20180711
  Serious: Yes (Hospitalization)
  Sender: FDA-Public Use
  Company Number: US-JNJFOC-20160114672

PATIENT
  Age: 56 Year
  Sex: Male

DRUGS (2)
  1. IMBRUVICA [Suspect]
     Active Substance: IBRUTINIB
     Indication: CHRONIC LYMPHOCYTIC LEUKAEMIA
     Dosage: 420MG,UNK
     Route: 048
     Dates: start: 20151012
  2. IMBRUVICA [Suspect]
     Active Substance: IBRUTINIB
     Indication: B-CELL SMALL LYMPHOCYTIC LYMPHOMA
     Dosage: 420MG,UNK
     Route: 048
     Dates: start: 20151012

REACTIONS (22)
  - Prostatomegaly [Not Recovered/Not Resolved]
  - Food craving [Unknown]
  - Abdominal pain [Recovered/Resolved]
  - Gingival bleeding [Not Recovered/Not Resolved]
  - Viral infection [Recovered/Resolved]
  - Blood urine present [Unknown]
  - Weight increased [Not Recovered/Not Resolved]
  - Urine cytology abnormal [Unknown]
  - Off label use [Not Recovered/Not Resolved]
  - Product use in unapproved indication [Not Recovered/Not Resolved]
  - Headache [Unknown]
  - Memory impairment [Unknown]
  - Platelet count decreased [Unknown]
  - Increased appetite [Not Recovered/Not Resolved]
  - Fatigue [Not Recovered/Not Resolved]
  - Blood creatinine increased [Recovering/Resolving]
  - Dry mouth [Not Recovered/Not Resolved]
  - Drug dose omission [Unknown]
  - White blood cell count increased [Recovered/Resolved]
  - Dyspnoea exertional [Not Recovered/Not Resolved]
  - Abdominal distension [Unknown]
  - White blood cell count decreased [Unknown]

NARRATIVE: CASE EVENT DATE: 2015
